FAERS Safety Report 6691038-2 (Version None)
Quarter: 2010Q2

REPORT INFORMATION
  Report Type: 
  Country: None (occurrence: None)
  Receive Date: 20100421
  Receipt Date: 20100412
  Transmission Date: 20101027
  Serious: Yes (Hospitalization)
  Sender: FDA-Public Use
  Company Number: GB-AMGEN-US395298

PATIENT
  Sex: Female

DRUGS (13)
  1. ENBREL [Suspect]
     Indication: DRUG USE FOR UNKNOWN INDICATION
     Dosage: 50MG, FREQUENCY UNSPECIFIED
     Route: 058
     Dates: start: 20100201, end: 20100201
  2. SIMVASTATIN [Concomitant]
     Dosage: UNKNOWN
  3. HYDROXYCHLOROQUINE SULFATE [Concomitant]
     Dosage: UNKNOWN
  4. OMEPRAZOLE [Concomitant]
     Dosage: UNKNOWN
  5. PLAVIX [Concomitant]
     Dosage: UNKNOWN
  6. DURAGESIC-100 [Concomitant]
     Dosage: UNKNOWN
     Route: 062
  7. AMITRIPTYLINE [Concomitant]
     Dosage: UNKNOWN
  8. BUMETANIDE [Concomitant]
     Dosage: UNKNOWN
  9. FERROUS SULFATE TAB [Concomitant]
     Dosage: UNKNOWN
  10. RANITIDINE [Concomitant]
     Dosage: UNKNOWN
  11. RISEDRONATE SODIUM [Concomitant]
     Dosage: UNKNOWN
  12. RAMIPRIL [Concomitant]
     Dosage: UNKNOWN
  13. CARVEDILOL [Concomitant]
     Dosage: UNKNOWN

REACTIONS (5)
  - ERYTHEMA [None]
  - HYPERSENSITIVITY [None]
  - INJECTION SITE REACTION [None]
  - PRURITUS [None]
  - RASH [None]
